FAERS Safety Report 18763342 (Version 2)
Quarter: 2021Q2

REPORT INFORMATION
  Report Type: Report from Study
  Country: US (occurrence: US)
  Receive Date: 20210120
  Receipt Date: 20210415
  Transmission Date: 20210717
  Serious: Yes (Hospitalization)
  Sender: FDA-Public Use
  Company Number: US-GLAXOSMITHKLINE-US2020GSK109080

PATIENT
  Age: 60 Year
  Sex: Male
  Weight: 70 kg

DRUGS (10)
  1. COLACE [Concomitant]
     Active Substance: DOCUSATE SODIUM
     Dosage: 100 MG
     Dates: start: 20200120
  2. ZOFRAN [Concomitant]
     Active Substance: ONDANSETRON HYDROCHLORIDE
     Dosage: 8 MG
     Dates: start: 20191211
  3. ZOVIRAX [Concomitant]
     Active Substance: ACYCLOVIR
     Dosage: 800 MG, BID
     Dates: start: 20200305
  4. ROXICODONE [Concomitant]
     Active Substance: OXYCODONE HYDROCHLORIDE
     Dosage: 5 MG, QID (AS NEEDED)
     Route: 048
     Dates: start: 20200228
  5. OS?CAL 500 [Concomitant]
     Dosage: 1 DF, QD
     Route: 048
  6. B?COMPLEX WITH B12 [Concomitant]
     Dosage: 1 DF, QD
     Route: 048
     Dates: start: 20140424
  7. ZYLOPRIM [Concomitant]
     Active Substance: ALLOPURINOL
     Dosage: 1 DF, QD
     Route: 048
     Dates: start: 20200617, end: 20200617
  8. SODIUM CHLORIDE. [Concomitant]
     Active Substance: SODIUM CHLORIDE
     Dosage: 30 MG/KG, ONCE
     Route: 042
  9. COREG [Concomitant]
     Active Substance: CARVEDILOL
     Dosage: 3.125 MG, QD
     Route: 048
     Dates: start: 20200427
  10. BELANTAMAB MAFODOTIN. [Suspect]
     Active Substance: BELANTAMAB MAFODOTIN
     Indication: PLASMA CELL MYELOMA
     Dosage: 2.5 MG/KG (EVERY 3 WEEKS)
     Route: 042

REACTIONS (6)
  - Pyrexia [Recovering/Resolving]
  - Dyspnoea exertional [Recovering/Resolving]
  - Pyrexia [Recovering/Resolving]
  - Sinus tachycardia [Recovered/Resolved]
  - Tachycardia [Recovering/Resolving]
  - Dyspnoea [Recovered/Resolved]

NARRATIVE: CASE EVENT DATE: 20200618
